FAERS Safety Report 16606659 (Version 1)
Quarter: 2019Q3

REPORT INFORMATION
  Report Type: Spontaneous
  Country: ES (occurrence: ES)
  Receive Date: 20190722
  Receipt Date: 20190722
  Transmission Date: 20191004
  Serious: Yes (Death, Other)
  Sender: FDA-Public Use
  Company Number: ES-ROCHE-2351330

PATIENT
  Age: 67 Year
  Sex: Female

DRUGS (3)
  1. COBIMETINIB. [Concomitant]
     Active Substance: COBIMETINIB
     Indication: MALIGNANT MELANOMA
     Route: 065
  2. VEMURAFENIB. [Suspect]
     Active Substance: VEMURAFENIB
     Indication: MALIGNANT MELANOMA
     Route: 065
     Dates: start: 201701
  3. DABRAFENIB [Concomitant]
     Active Substance: DABRAFENIB
     Indication: MALIGNANT MELANOMA
     Route: 065
     Dates: start: 201701

REACTIONS (1)
  - Stevens-Johnson syndrome [Unknown]
